FAERS Safety Report 18392598 (Version 2)
Quarter: 2020Q4

REPORT INFORMATION
  Report Type: Spontaneous
  Country: US (occurrence: US)
  Receive Date: 20201016
  Receipt Date: 20201118
  Transmission Date: 20210114
  Serious: No
  Sender: FDA-Public Use
  Company Number: US-GLAXOSMITHKLINE-US2020201559

PATIENT
  Age: 68 Year
  Sex: Male

DRUGS (1)
  1. FLUTICASONE PROPIONATE+SALMETEROL XINAFOATE [Suspect]
     Active Substance: FLUTICASONE PROPIONATE\SALMETEROL XINAFOATE
     Indication: ASTHMA
     Dosage: 1 PUFF(S), 1D, 250/50 MCG
     Dates: start: 20201002

REACTIONS (8)
  - Paraesthesia oral [Recovering/Resolving]
  - Tremor [Unknown]
  - Dyspnoea [Unknown]
  - Underdose [Unknown]
  - Nervousness [Recovering/Resolving]
  - Oropharyngeal discomfort [Recovering/Resolving]
  - Product complaint [Unknown]
  - Product dose omission issue [Unknown]

NARRATIVE: CASE EVENT DATE: 20201002
